FAERS Safety Report 24942122 (Version 1)
Quarter: 2025Q1

REPORT INFORMATION
  Report Type: Spontaneous
  Country: US (occurrence: US)
  Receive Date: 20250207
  Receipt Date: 20250207
  Transmission Date: 20250409
  Serious: No
  Sender: BIOGEN
  Company Number: US-BIOGEN-2021BI00981163

PATIENT
  Age: 46 Year
  Sex: Female

DRUGS (2)
  1. PLEGRIDY [Suspect]
     Active Substance: PEGINTERFERON BETA-1A
     Indication: Multiple sclerosis
     Route: 050
     Dates: start: 20210206
  2. PLEGRIDY [Suspect]
     Active Substance: PEGINTERFERON BETA-1A
     Route: 050
     Dates: start: 202102

REACTIONS (15)
  - Depression [Not Recovered/Not Resolved]
  - Balance disorder [Unknown]
  - Initial insomnia [Unknown]
  - Injection site bruising [Unknown]
  - Weight increased [Unknown]
  - Joint swelling [Unknown]
  - Peripheral swelling [Unknown]
  - Haemorrhoids [Unknown]
  - Nasal septum deviation [Unknown]
  - Injection site mass [Unknown]
  - Pain [Unknown]
  - Headache [Unknown]
  - Injection site pain [Unknown]
  - Chills [Unknown]
  - Injection site reaction [Unknown]

NARRATIVE: CASE EVENT DATE: 20210201
